FAERS Safety Report 10912281 (Version 3)
Quarter: 2015Q2

REPORT INFORMATION
  Report Type: Spontaneous
  Country: US (occurrence: None)
  Receive Date: 20150310
  Receipt Date: 20150423
  Transmission Date: 20150821
  Serious: Yes (Hospitalization)
  Sender: FDA-Public Use
  Company Number: US-001751

PATIENT
  Age: 68 Year
  Sex: Female

DRUGS (3)
  1. ZINC [Concomitant]
     Active Substance: ZINC\ZINC CHLORIDE
  2. GATTEX [Suspect]
     Active Substance: TEDUGLUTIDE\WATER
     Indication: SHORT-BOWEL SYNDROME
     Route: 058
     Dates: start: 201501, end: 20150212
  3. METHOTREXATE [Concomitant]
     Active Substance: METHOTREXATE

REACTIONS (4)
  - Insomnia [None]
  - Device related infection [None]
  - Abdominal discomfort [None]
  - Blood iron decreased [None]

NARRATIVE: CASE EVENT DATE: 201502
